FAERS Safety Report 4933987-9 (Version None)
Quarter: 2006Q1

REPORT INFORMATION
  Report Type: 
  Country: None (occurrence: None)
  Receive Date: 20060307
  Receipt Date: 20060223
  Transmission Date: 20060701
  Serious: Yes (Other)
  Sender: FDA-Public Use
  Company Number: US-JNJFOC-20060205794

PATIENT
  Age: 11 Year
  Sex: Male
  Weight: 26.76 kg

DRUGS (3)
  1. CONCERTA [Suspect]
     Route: 048
  2. CONCERTA [Suspect]
     Indication: ATTENTION DEFICIT/HYPERACTIVITY DISORDER
     Route: 048
  3. CLONIDINE [Concomitant]
     Route: 048

REACTIONS (4)
  - INCREASED APPETITE [None]
  - PROTEIN URINE PRESENT [None]
  - RENAL DISORDER [None]
  - WEIGHT DECREASED [None]
